FAERS Safety Report 9742951 (Version 1)
Quarter: 2013Q4

REPORT INFORMATION
  Report Type: Spontaneous
  Country: US (occurrence: US)
  Receive Date: 20131210
  Receipt Date: 20131210
  Transmission Date: 20140711
  Serious: No
  Sender: FDA-Public Use
  Company Number: US-TEVA-406196USA

PATIENT
  Sex: Male

DRUGS (2)
  1. BUDESONIDE [Suspect]
     Dosage: 0.5MG/2ML
     Route: 055
  2. BROVANA [Suspect]

REACTIONS (2)
  - Drug ineffective [Unknown]
  - Cough [Unknown]
